FAERS Safety Report 13671988 (Version 1)
Quarter: 2017Q2

REPORT INFORMATION
  Report Type: Report from Study
  Country: US (occurrence: US)
  Receive Date: 20170620
  Receipt Date: 20170620
  Transmission Date: 20170830
  Serious: Yes (Other)
  Sender: FDA-Public Use
  Company Number: US-JAZZ-2017-US-007539

PATIENT
  Sex: Female

DRUGS (21)
  1. XYREM [Suspect]
     Active Substance: SODIUM OXYBATE
     Dosage: 2.25 G, BID
     Route: 048
     Dates: start: 201611, end: 201701
  2. AMLODIPINE BESYLATE. [Concomitant]
     Active Substance: AMLODIPINE BESYLATE
  3. HYDROCHLOROTHIAZIDE. [Concomitant]
     Active Substance: HYDROCHLOROTHIAZIDE
  4. AZOR                               /00595201/ [Concomitant]
     Active Substance: ALPRAZOLAM
  5. LEVAQUIN [Concomitant]
     Active Substance: LEVOFLOXACIN
  6. OXYCODONE HYDROCHLORIDE. [Concomitant]
     Active Substance: OXYCODONE HYDROCHLORIDE
  7. ASPIRIN (E.C.) [Concomitant]
     Active Substance: ASPIRIN
  8. PROTONIX                           /00661201/ [Concomitant]
     Active Substance: OMEPRAZOLE
  9. PATANOL [Concomitant]
     Active Substance: OLOPATADINE HYDROCHLORIDE
  10. TOPAMAX [Concomitant]
     Active Substance: TOPIRAMATE
  11. PROVIGIL [Concomitant]
     Active Substance: MODAFINIL
  12. VITAMIN D3 [Concomitant]
     Active Substance: CHOLECALCIFEROL
  13. NUVIGIL [Concomitant]
     Active Substance: ARMODAFINIL
  14. TRAMADOL HCL [Concomitant]
     Active Substance: TRAMADOL HYDROCHLORIDE
  15. ADDERALL [Concomitant]
     Active Substance: AMPHETAMINE ASPARTATE\AMPHETAMINE SULFATE\DEXTROAMPHETAMINE SACCHARATE\DEXTROAMPHETAMINE SULFATE
  16. LIPITOR [Concomitant]
     Active Substance: ATORVASTATIN CALCIUM
  17. VICODIN [Concomitant]
     Active Substance: ACETAMINOPHEN\HYDROCODONE BITARTRATE
  18. ORABASE                            /00104701/ [Concomitant]
  19. XYREM [Suspect]
     Active Substance: SODIUM OXYBATE
     Indication: NARCOLEPSY
     Dosage: 4.5 G, BID
     Route: 048
     Dates: start: 201104, end: 201201
  20. COZAAR [Concomitant]
     Active Substance: LOSARTAN POTASSIUM
  21. FLAGYL [Concomitant]
     Active Substance: METRONIDAZOLE\METRONIDAZOLE HYDROCHLORIDE

REACTIONS (8)
  - Abdominal discomfort [Unknown]
  - Eye disorder [Unknown]
  - Seizure [Recovered/Resolved]
  - Suicidal ideation [Recovering/Resolving]
  - Head injury [Unknown]
  - Depression [Not Recovered/Not Resolved]
  - Musculoskeletal discomfort [Unknown]
  - Asthenia [Unknown]
